FAERS Safety Report 10746883 (Version 2)
Quarter: 2015Q1

REPORT INFORMATION
  Report Type: Spontaneous
  Country: US (occurrence: US)
  Receive Date: 20150129
  Receipt Date: 20150216
  Transmission Date: 20150721
  Serious: Yes (Death)
  Sender: FDA-Public Use
  Company Number: US-PAR PHARMACEUTICAL, INC-2015SCPR010292

PATIENT
  Age: 54 Year
  Sex: Female

DRUGS (3)
  1. BENZODIAZEPINE [Suspect]
     Active Substance: BENZODIAZEPINE
     Indication: PRODUCT USED FOR UNKNOWN INDICATION
     Dosage: UNK, UNKNOWN, INGST+UNK
  2. MORPHINE SULFATE. [Suspect]
     Active Substance: MORPHINE SULFATE
     Indication: PRODUCT USED FOR UNKNOWN INDICATION
     Dosage: UNK, UNKNOWN, INGST+UNK
  3. ACETAMINOPHEN W/HYDROCODONE [Suspect]
     Active Substance: ACETAMINOPHEN\HYDROCODONE
     Indication: PRODUCT USED FOR UNKNOWN INDICATION
     Dosage: UNK, UNKNOWN, INGST+UNK

REACTIONS (2)
  - Death [Fatal]
  - Toxicity to various agents [Fatal]

NARRATIVE: CASE EVENT DATE: 2013
